FAERS Safety Report 8294681-2 (Version None)
Quarter: 2012Q2

REPORT INFORMATION
  Report Type: 
  Country: None (occurrence: None)
  Receive Date: 20120418
  Receipt Date: 20120410
  Transmission Date: 20120825
  Serious: Yes (Other)
  Sender: FDA-Public Use
  Company Number: US-ASTELLAS-2012US003935

PATIENT
  Sex: Female
  Weight: 58 kg

DRUGS (2)
  1. ERLOTINIB HYDROCHLORIDE [Suspect]
     Dosage: 100 MG, UID/QD
     Route: 048
     Dates: start: 20120101
  2. ERLOTINIB HYDROCHLORIDE [Suspect]
     Indication: NON-SMALL CELL LUNG CANCER
     Dosage: 150 MG, UID/QD
     Route: 048
     Dates: end: 20120101

REACTIONS (7)
  - NAIL INFECTION [None]
  - BLISTER [None]
  - RASH [None]
  - ABDOMINAL PAIN [None]
  - MUCOUS STOOLS [None]
  - HAEMATOCHEZIA [None]
  - DIARRHOEA [None]
